FAERS Safety Report 4912227-0 (Version None)
Quarter: 2006Q1

REPORT INFORMATION
  Report Type: 
  Country: None (occurrence: None)
  Receive Date: 20060215
  Receipt Date: 20051025
  Transmission Date: 20060701
  Serious: No
  Sender: FDA-Public Use
  Company Number: US-GLAXOSMITHKLINE-A0579840A

PATIENT
  Age: 32 Year
  Sex: Female
  Weight: 53.2 kg

DRUGS (2)
  1. VALTREX [Suspect]
     Dosage: 1000MG UNKNOWN
     Route: 048
     Dates: start: 20051013, end: 20051014
  2. AMITRIPTYLINE HCL [Concomitant]

REACTIONS (1)
  - RASH GENERALISED [None]
